FAERS Safety Report 15868104 (Version 4)
Quarter: 2019Q2

REPORT INFORMATION
  Report Type: Spontaneous
  Country: US (occurrence: US)
  Receive Date: 20190125
  Receipt Date: 20190430
  Transmission Date: 20190711
  Serious: Yes (Other)
  Sender: FDA-Public Use
  Company Number: US-PFIZER INC-2019031756

PATIENT
  Age: 69 Year
  Sex: Female
  Weight: 88.45 kg

DRUGS (3)
  1. BOSULIF [Suspect]
     Active Substance: BOSUTINIB MONOHYDRATE
     Dosage: 100 MG, UNK
  2. BOSULIF [Suspect]
     Active Substance: BOSUTINIB MONOHYDRATE
     Indication: CHRONIC MYELOID LEUKAEMIA
     Dosage: 400 MG, 1X/DAY
     Route: 048
     Dates: start: 2017
  3. BOSULIF [Suspect]
     Active Substance: BOSUTINIB MONOHYDRATE
     Dosage: 400 MG, ALTERNATE DAY
     Route: 048
     Dates: start: 2018

REACTIONS (4)
  - Cardiac failure congestive [Unknown]
  - Fungal skin infection [Unknown]
  - Malaise [Recovering/Resolving]
  - Fluid retention [Unknown]

NARRATIVE: CASE EVENT DATE: 2017
